FAERS Safety Report 8229922-0 (Version None)
Quarter: 2012Q1

REPORT INFORMATION
  Report Type: 
  Country: None (occurrence: None)
  Receive Date: 20120323
  Receipt Date: 20120314
  Transmission Date: 20120608
  Serious: No
  Sender: FDA-Public Use
  Company Number: US-BIOGENIDEC-2012BI003923

PATIENT
  Age: 53 Year
  Sex: Female

DRUGS (1)
  1. TYSABRI [Suspect]
     Indication: MULTIPLE SCLEROSIS
     Route: 042
     Dates: start: 20120117

REACTIONS (6)
  - CHILLS [None]
  - INFUSION SITE HAEMATOMA [None]
  - DIARRHOEA [None]
  - MEDICAL DEVICE COMPLICATION [None]
  - INFUSION SITE SWELLING [None]
  - MUSCULAR WEAKNESS [None]
